FAERS Safety Report 14728994 (Version 2)
Quarter: 2018Q2

REPORT INFORMATION
  Report Type: Report from Study
  Country: None (occurrence: RO)
  Receive Date: 20180406
  Receipt Date: 20180516
  Transmission Date: 20180711
  Serious: Yes (Hospitalization, Other)
  Sender: FDA-Public Use
  Company Number: RO-ABBVIE-17K-135-1948202-00

PATIENT
  Age: 61 Year
  Sex: Male

DRUGS (6)
  1. LEPONEX [Concomitant]
     Active Substance: CLOZAPINE
     Indication: PRODUCT USED FOR UNKNOWN INDICATION
  2. DUODOPA [Suspect]
     Active Substance: CARBIDOPA\LEVODOPA
     Indication: PARKINSON^S DISEASE
     Dosage: 24/24?3/6.4/5?DM 0 ML, CR 6.6 ML/H, ED- 5 ML, 24/24
     Route: 050
     Dates: start: 20130917
  3. ISICOM [Concomitant]
     Active Substance: CARBIDOPA\LEVODOPA
     Indication: PARKINSON^S DISEASE
  4. DUODOPA [Suspect]
     Active Substance: CARBIDOPA\LEVODOPA
     Dosage: MD=3.00, CD=6.40, ED=5.00, NRED=4, DMN=0.00, DCN=0.00, EDN=0.00, NREDN=0
     Route: 050
     Dates: end: 20180403
  5. STILNOX [Concomitant]
     Active Substance: ZOLPIDEM TARTRATE
     Indication: PRODUCT USED FOR UNKNOWN INDICATION
  6. MEMANTINA [Concomitant]
     Active Substance: MEMANTINE HYDROCHLORIDE
     Indication: PRODUCT USED FOR UNKNOWN INDICATION

REACTIONS (7)
  - Stoma site ulcer [Recovering/Resolving]
  - Gastritis erosive [Recovering/Resolving]
  - Stoma site haemorrhage [Not Recovered/Not Resolved]
  - Embedded device [Recovered/Resolved]
  - Vertigo [Not Recovered/Not Resolved]
  - Stoma site infection [Recovered/Resolved]
  - Device dislocation [Recovered/Resolved]

NARRATIVE: CASE EVENT DATE: 20170413
